FAERS Safety Report 24970341 (Version 1)
Quarter: 2025Q1

REPORT INFORMATION
  Report Type: Spontaneous
  Country: BE (occurrence: BE)
  Receive Date: 20250214
  Receipt Date: 20250214
  Transmission Date: 20250409
  Serious: Yes (Hospitalization)
  Sender: AUROBINDO
  Company Number: BE-DEAQVIDAP-20240117

PATIENT
  Age: 70 Year
  Sex: Male
  Weight: 70 kg

DRUGS (3)
  1. DOCETAXEL [Suspect]
     Active Substance: DOCETAXEL
     Indication: Hormone-refractory prostate cancer
     Route: 042
     Dates: start: 20241106, end: 20241106
  2. LORIGERLIMAB [Suspect]
     Active Substance: LORIGERLIMAB
     Indication: Hormone-refractory prostate cancer
     Route: 042
     Dates: start: 20241106, end: 20241106
  3. PREDNISONE [Suspect]
     Active Substance: PREDNISONE
     Indication: Hormone-refractory prostate cancer
     Dosage: 5 MILLIGRAM, ONCE A DAY
     Route: 048
     Dates: start: 20241106, end: 20241121

REACTIONS (2)
  - General physical health deterioration [Recovered/Resolved]
  - Diarrhoea [Unknown]

NARRATIVE: CASE EVENT DATE: 20241122
